FAERS Safety Report 6410318-9 (Version None)
Quarter: 2009Q4

REPORT INFORMATION
  Report Type: 
  Country: None (occurrence: None)
  Receive Date: 20091022
  Receipt Date: 20091013
  Transmission Date: 20100525
  Serious: No
  Sender: FDA-Public Use
  Company Number: US-B.I. PHARMACEUTICALS,INC./RIDGEFIELD-2009-BP-08641BP

PATIENT
  Sex: Female

DRUGS (8)
  1. CATAPRES-TTS-1 [Suspect]
     Indication: CONVULSION
     Dosage: 0.1 MG
     Route: 062
     Dates: start: 20090701
  2. CATAPRES-TTS-1 [Suspect]
     Indication: POST-TRAUMATIC STRESS DISORDER
  3. TRILEPTELL [Concomitant]
  4. TOPAMAX [Concomitant]
  5. NEURONTIN [Concomitant]
  6. DIAZIDE [Concomitant]
  7. ZANTAC [Concomitant]
  8. CELEXA [Concomitant]

REACTIONS (3)
  - APPLICATION SITE DISCOLOURATION [None]
  - APPLICATION SITE ERYTHEMA [None]
  - APPLICATION SITE PRURITUS [None]
